FAERS Safety Report 25821549 (Version 1)
Quarter: 2025Q3

REPORT INFORMATION
  Report Type: Spontaneous
  Country: US (occurrence: US)
  Receive Date: 20250919
  Receipt Date: 20250919
  Transmission Date: 20251021
  Serious: No
  Sender: TOLMAR
  Company Number: US-Tolmar-TLM-2025-06201

PATIENT
  Sex: Female

DRUGS (4)
  1. ELIGARD [Suspect]
     Active Substance: LEUPROLIDE ACETATE
     Indication: Breast cancer
     Route: 065
  2. ELIGARD [Suspect]
     Active Substance: LEUPROLIDE ACETATE
     Indication: Therapeutic ovarian suppression
  3. DEVICE [Suspect]
     Active Substance: DEVICE
     Indication: Breast cancer
  4. DEVICE [Suspect]
     Active Substance: DEVICE
     Indication: Therapeutic ovarian suppression

REACTIONS (1)
  - Off label use [Unknown]
